FAERS Safety Report 8381649-0 (Version None)
Quarter: 2012Q2

REPORT INFORMATION
  Report Type: 
  Country: None (occurrence: None)
  Receive Date: 20120524
  Receipt Date: 20120413
  Transmission Date: 20120825
  Serious: Yes (Hospitalization)
  Sender: FDA-Public Use
  Company Number: US-ASTRAZENECA-2012SE24662

PATIENT
  Sex: Female

DRUGS (4)
  1. ZOLOFT [Concomitant]
  2. SEROQUEL [Suspect]
     Route: 048
  3. COUMADIN [Concomitant]
  4. NEURONTIN [Concomitant]

REACTIONS (6)
  - OBSTRUCTIVE UROPATHY [None]
  - PNEUMONIA [None]
  - URINARY HESITATION [None]
  - DYSURIA [None]
  - BLADDER DISORDER [None]
  - PULMONARY EMBOLISM [None]
